FAERS Safety Report 5240309-5 (Version None)
Quarter: 2007Q1

REPORT INFORMATION
  Report Type: 
  Country: None (occurrence: None)
  Receive Date: 20070219
  Receipt Date: 20070213
  Transmission Date: 20070707
  Serious: Yes (Other)
  Sender: FDA-Public Use
  Company Number: GB-BAYER-200710199BNE

PATIENT
  Age: 52 Year
  Sex: Male

DRUGS (2)
  1. CIPROFLOXACIN [Suspect]
     Indication: OTITIS MEDIA
     Dosage: TOTAL DAILY DOSE: 500 MG
     Route: 048
     Dates: start: 20061208, end: 20061210
  2. QUININE SULFATE [Concomitant]
     Indication: MUSCLE SPASMS

REACTIONS (1)
  - MOTOR NEURONE DISEASE [None]
